FAERS Safety Report 17244587 (Version 1)
Quarter: 2020Q1

REPORT INFORMATION
  Report Type: Report from Study
  Country: CA (occurrence: CA)
  Receive Date: 20200107
  Receipt Date: 20200107
  Transmission Date: 20200409
  Serious: Yes (Hospitalization, Other)
  Sender: FDA-Public Use
  Company Number: CA-BEH-2020111331

PATIENT
  Age: 59 Year
  Sex: Female

DRUGS (12)
  1. HIZENTRA [Suspect]
     Active Substance: HUMAN IMMUNOGLOBULIN G
     Indication: SECONDARY IMMUNODEFICIENCY
     Dosage: 7 GRAM, QW
     Route: 058
     Dates: start: 20170524
  2. RITALIN [Concomitant]
     Active Substance: METHYLPHENIDATE HYDROCHLORIDE
  3. NEUPOGEN [Concomitant]
     Active Substance: FILGRASTIM
  4. HIZENTRA [Suspect]
     Active Substance: HUMAN IMMUNOGLOBULIN G
     Indication: PLASMA CELL MYELOMA
  5. DOMPERIDONE [Concomitant]
     Active Substance: DOMPERIDONE
  6. OXAZEPAM. [Concomitant]
     Active Substance: OXAZEPAM
  7. AREDIA [Concomitant]
     Active Substance: PAMIDRONATE DISODIUM
  8. PANTOLOC [PANTOPRAZOLE] [Concomitant]
     Active Substance: PANTOPRAZOLE SODIUM
  9. CALCIUM [Concomitant]
     Active Substance: CALCIUM
  10. REVLIMID [Concomitant]
     Active Substance: LENALIDOMIDE
  11. ACYCLOVIR [ACICLOVIR] [Concomitant]
     Active Substance: ACYCLOVIR
  12. DEXTROAMPHETAMINE [DEXAMFETAMINE] [Concomitant]
     Active Substance: DEXTROAMPHETAMINE

REACTIONS (3)
  - Drug ineffective [Unknown]
  - Urinary tract infection [Recovering/Resolving]
  - Bronchitis [Recovered/Resolved]

NARRATIVE: CASE EVENT DATE: 2019
